FAERS Safety Report 8580035-8 (Version None)
Quarter: 2012Q3

REPORT INFORMATION
  Report Type: 
  Country: None (occurrence: None)
  Receive Date: 20120731
  Receipt Date: 20120731
  Transmission Date: 20120928
  Serious: Yes (Other)
  Sender: FDA-Public Use
  Company Number: None

PATIENT
  Age: 33 Year
  Sex: Female
  Weight: 63.5036 kg

DRUGS (1)
  1. DIPHENHYDRAMINE HCL [Suspect]
     Indication: URTICARIA
     Dosage: 50 MG -2 PILLS- EVERY 4 HOURS PO
     Dates: start: 20120417, end: 20120421

REACTIONS (3)
  - DYSKINESIA [None]
  - MUSCLE TWITCHING [None]
  - TREMOR [None]
